FAERS Safety Report 5232391-6 (Version None)
Quarter: 2007Q1

REPORT INFORMATION
  Report Type: 
  Country: None (occurrence: None)
  Receive Date: 20070207
  Receipt Date: 20070206
  Transmission Date: 20070707
  Serious: Yes (Hospitalization)
  Sender: FDA-Public Use
  Company Number: US-BRISTOL-MYERS SQUIBB COMPANY-13540000

PATIENT
  Age: 63 Year
  Sex: Female

DRUGS (38)
  1. CARBOPLATIN [Suspect]
     Indication: NON-SMALL CELL LUNG CANCER
     Route: 042
     Dates: start: 20060703, end: 20060703
  2. PACLITAXEL [Suspect]
     Indication: NON-SMALL CELL LUNG CANCER
     Route: 042
     Dates: start: 20060703, end: 20060703
  3. BLINDED: SORAFENIB [Suspect]
     Indication: NON-SMALL CELL LUNG CANCER
     Route: 048
     Dates: start: 20060704, end: 20060712
  4. BLINDED: PLACEBO [Suspect]
     Route: 048
     Dates: start: 20060704, end: 20060712
  5. FLOVENT [Concomitant]
     Indication: CHRONIC OBSTRUCTIVE PULMONARY DISEASE
     Route: 055
     Dates: start: 20060401
  6. SEREVENT [Concomitant]
     Indication: CHRONIC OBSTRUCTIVE PULMONARY DISEASE
     Route: 055
     Dates: start: 20060401
  7. ALBUTEROL [Concomitant]
     Indication: CHRONIC OBSTRUCTIVE PULMONARY DISEASE
     Route: 055
  8. SPIRIVA [Concomitant]
     Indication: CHRONIC OBSTRUCTIVE PULMONARY DISEASE
     Route: 055
  9. ZOFRAN [Concomitant]
     Indication: PREMEDICATION
     Route: 042
     Dates: start: 20060703, end: 20060703
  10. BENADRYL [Concomitant]
     Indication: PREMEDICATION
     Route: 042
     Dates: start: 20060703, end: 20060703
  11. TAGAMET [Concomitant]
     Indication: PREMEDICATION
     Route: 042
     Dates: start: 20060703, end: 20060703
  12. DECADRON [Concomitant]
     Indication: PREMEDICATION
     Route: 042
     Dates: start: 20060703, end: 20060703
  13. ETODOLAC [Concomitant]
     Indication: PAIN
     Dates: start: 20010101
  14. CLONIDINE [Concomitant]
     Indication: HYPERTENSION
  15. ATENOLOL [Concomitant]
     Indication: HYPERTENSION
     Dates: start: 19970101
  16. FOLIC ACID [Concomitant]
     Indication: NUTRITIONAL SUPPORT
     Route: 048
     Dates: start: 19980101
  17. SINGULAIR [Concomitant]
     Indication: SEASONAL ALLERGY
     Route: 048
     Dates: start: 20010101
  18. NEXIUM [Concomitant]
     Indication: GASTROOESOPHAGEAL REFLUX DISEASE
     Route: 048
     Dates: start: 20000101
  19. PERCOCET [Concomitant]
     Indication: ANALGESIC EFFECT
     Route: 048
     Dates: start: 20060518, end: 20060701
  20. AMBIEN [Concomitant]
     Indication: INSOMNIA
     Route: 048
     Dates: start: 20060518
  21. DONNATAL [Concomitant]
     Indication: ABDOMINAL DISCOMFORT
     Route: 048
     Dates: start: 20060501
  22. MAGNESIUM [Concomitant]
     Indication: HYPOMAGNESAEMIA
     Route: 048
     Dates: start: 20060628
  23. OXYCONTIN [Concomitant]
     Indication: METASTATIC PAIN
     Route: 048
     Dates: start: 20060710
  24. PROCRIT [Concomitant]
     Indication: ANAEMIA
     Route: 058
     Dates: start: 20060710, end: 20060710
  25. MEGACE [Concomitant]
     Indication: INCREASED APPETITE
  26. MORPHINE [Concomitant]
     Indication: PAIN
     Dates: start: 20060501, end: 20060601
  27. METAMUCIL [Concomitant]
     Indication: CONSTIPATION
     Dates: start: 20060601, end: 20060601
  28. DULCOLAX [Concomitant]
     Indication: CONSTIPATION
     Dates: start: 20060601, end: 20060601
  29. CALCIUM [Concomitant]
     Indication: MINERAL SUPPLEMENTATION
     Route: 048
     Dates: start: 20060601
  30. VITAMIN B6 [Concomitant]
     Indication: VITAMIN SUPPLEMENTATION
     Route: 048
     Dates: start: 20060601
  31. CENTRUM SILVER [Concomitant]
     Indication: VITAMIN SUPPLEMENTATION
     Route: 048
     Dates: start: 20010101
  32. RESTORIL [Concomitant]
     Indication: INSOMNIA
     Route: 048
     Dates: start: 20060601
  33. ULTRAM [Concomitant]
     Indication: PAIN
     Route: 048
     Dates: start: 20060607
  34. DIFLUCAN [Concomitant]
     Indication: PROPHYLAXIS
     Route: 048
     Dates: start: 20060701, end: 20060701
  35. FLONASE [Concomitant]
     Indication: SEASONAL ALLERGY
     Route: 045
  36. MUCINEX [Concomitant]
     Indication: COUGH
     Dates: start: 20040101, end: 20060101
  37. LOVENOX [Concomitant]
     Indication: THROMBOSIS PROPHYLAXIS
     Route: 058
     Dates: start: 20060701
  38. NEUTRA-PHOS [Concomitant]
     Indication: NUTRITIONAL SUPPORT
     Route: 048
     Dates: start: 20060701, end: 20060701

REACTIONS (3)
  - CONSTIPATION [None]
  - FEBRILE NEUTROPENIA [None]
  - ILEUS [None]
